FAERS Safety Report 9564214 (Version 1)
Quarter: 2013Q3

REPORT INFORMATION
  Report Type: Spontaneous
  Country: US (occurrence: US)
  Receive Date: 20130930
  Receipt Date: 20130930
  Transmission Date: 20140515
  Serious: No
  Sender: FDA-Public Use
  Company Number: US-009507513-1309USA013871

PATIENT
  Age: 43 Year
  Sex: Female

DRUGS (4)
  1. EMEND [Suspect]
     Indication: PROPHYLAXIS OF NAUSEA AND VOMITING
     Dosage: 150 MG, ONCE
     Route: 042
     Dates: start: 20130926
  2. DOXORUBICIN [Suspect]
     Dosage: UNK
  3. DECADRON [Concomitant]
     Dosage: UNK
  4. ALOXI [Concomitant]
     Dosage: UNK

REACTIONS (1)
  - Muscular weakness [Unknown]
